FAERS Safety Report 6146084-4 (Version None)
Quarter: 2009Q2

REPORT INFORMATION
  Report Type: 
  Country: None (occurrence: None)
  Receive Date: 20090407
  Receipt Date: 20090407
  Transmission Date: 20091009
  Serious: Yes (Other)
  Sender: FDA-Public Use
  Company Number: US-PFIZER INC-2005146993

PATIENT
  Sex: Male
  Weight: 68 kg

DRUGS (2)
  1. LIPITOR [Suspect]
     Route: 048
     Dates: start: 20000101
  2. LIPITOR [Suspect]
     Dosage: 20 MG, 1X/DAY

REACTIONS (11)
  - ARTHRALGIA [None]
  - BLOOD CHOLESTEROL INCREASED [None]
  - BLOOD TRIGLYCERIDES ABNORMAL [None]
  - CARDIAC DISORDER [None]
  - FATIGUE [None]
  - FOREIGN BODY TRAUMA [None]
  - HYPERTENSION [None]
  - MUSCULAR WEAKNESS [None]
  - MYALGIA [None]
  - PROSTATOMEGALY [None]
  - WRONG TECHNIQUE IN DRUG USAGE PROCESS [None]
